FAERS Safety Report 10034690 (Version 2)
Quarter: 2014Q2

REPORT INFORMATION
  Report Type: Spontaneous
  Country: JP (occurrence: JP)
  Receive Date: 20140325
  Receipt Date: 20140402
  Transmission Date: 20141212
  Serious: Yes (Other)
  Sender: FDA-Public Use
  Company Number: JP-ASTELLAS-2014JP002597

PATIENT
  Age: 83 Year
  Sex: Female

DRUGS (7)
  1. BETANIS [Suspect]
     Dosage: 50 MG, UID/QD
     Route: 048
     Dates: start: 20140313, end: 20140317
  2. CELECOX [Suspect]
     Dosage: 100 MG, UID/QD
     Route: 048
  3. NEXIUM                             /01479302/ [Suspect]
     Dosage: UNK
     Route: 048
  4. PROLMON [Suspect]
     Dosage: UNK
     Route: 048
  5. BALODIPINE [Suspect]
     Dosage: UNK
     Route: 048
  6. TOVIAZ [Concomitant]
     Dosage: UNK
     Route: 048
     Dates: end: 20140312
  7. TOVIAZ [Concomitant]
     Dosage: UNK
     Route: 048
     Dates: start: 20140318

REACTIONS (2)
  - Intentional product misuse [Unknown]
  - Generalised oedema [Recovering/Resolving]
